FAERS Safety Report 18507184 (Version 1)
Quarter: 2020Q4

REPORT INFORMATION
  Report Type: Spontaneous
  Country: CA (occurrence: CA)
  Receive Date: 20201116
  Receipt Date: 20201116
  Transmission Date: 20210114
  Serious: Yes (Other)
  Sender: FDA-Public Use
  Company Number: CA-SAMSUNG BIOEPIS-SB-2020-34369

PATIENT
  Age: 26 Year
  Sex: Female

DRUGS (2)
  1. DESOXIMETASONE. [Concomitant]
     Active Substance: DESOXIMETASONE
     Indication: PRODUCT USED FOR UNKNOWN INDICATION
     Dosage: UNKNOWN
     Route: 065
  2. INFLIXIMAB [Suspect]
     Active Substance: INFLIXIMAB
     Indication: CROHN^S DISEASE
     Route: 042

REACTIONS (13)
  - Blood pressure fluctuation [Recovered/Resolved]
  - Arthralgia [Recovered/Resolved]
  - Contusion [Recovered/Resolved]
  - Hypertension [Recovered/Resolved]
  - Pruritus [Recovered/Resolved]
  - Acne [Recovered/Resolved]
  - Erythema [Recovered/Resolved]
  - Nasopharyngitis [Recovered/Resolved]
  - Vein rupture [Recovered/Resolved]
  - Fatigue [Recovered/Resolved]
  - Rash erythematous [Recovered/Resolved]
  - Off label use [Recovered/Resolved]
  - Discomfort [Recovered/Resolved]
